FAERS Safety Report 6714490-2 (Version None)
Quarter: 2010Q2

REPORT INFORMATION
  Report Type: 
  Country: None (occurrence: None)
  Receive Date: 20100506
  Receipt Date: 20100427
  Transmission Date: 20101027
  Serious: Yes (Hospitalization)
  Sender: FDA-Public Use
  Company Number: US-AMGEN-QUU408868

PATIENT
  Sex: Male

DRUGS (1)
  1. ENBREL [Suspect]
     Indication: PSORIATIC ARTHROPATHY
     Route: 058
     Dates: start: 20010501, end: 20100310

REACTIONS (3)
  - GALLBLADDER OPERATION [None]
  - HIP ARTHROPLASTY [None]
  - PSORIATIC ARTHROPATHY [None]
